FAERS Safety Report 10388445 (Version 2)
Quarter: 2014Q3

REPORT INFORMATION
  Report Type: Report from Study
  Country: MX (occurrence: MX)
  Receive Date: 20140815
  Receipt Date: 20140826
  Transmission Date: 20150326
  Serious: Yes (Other)
  Sender: FDA-Public Use
  Company Number: PHHY2014MX101788

PATIENT
  Age: 67 Year
  Sex: Female

DRUGS (2)
  1. RASILEZ HCT [Suspect]
     Active Substance: ALISKIREN\HYDROCHLOROTHIAZIDE
     Dosage: 300 MG, UNK
  2. TERFAMEX [Concomitant]
     Indication: WEIGHT CONTROL
     Dosage: 1 UKN, UNK
     Dates: start: 201402, end: 201407

REACTIONS (19)
  - Depressed mood [Recovered/Resolved]
  - Blood pressure increased [Recovered/Resolved]
  - Pain in extremity [Recovered/Resolved]
  - Nervousness [Recovered/Resolved]
  - Spinal disorder [Recovered/Resolved]
  - Insomnia [Recovered/Resolved]
  - Varicose vein [Recovered/Resolved]
  - Drug ineffective [Recovered/Resolved]
  - Hypotension [Recovered/Resolved]
  - Abasia [Recovered/Resolved]
  - Fall [Recovered/Resolved]
  - Mental disorder [Recovered/Resolved]
  - Visual acuity reduced [Recovered/Resolved]
  - Acne [Recovered/Resolved]
  - Tremor [Recovered/Resolved]
  - Limb discomfort [Recovered/Resolved]
  - Face injury [Recovered/Resolved]
  - Ligament sprain [Recovered/Resolved]
  - Drug intolerance [Recovered/Resolved]
